FAERS Safety Report 20862908 (Version 1)
Quarter: 2022Q2

REPORT INFORMATION
  Report Type: Spontaneous
  Country: GB (occurrence: GB)
  Receive Date: 20220523
  Receipt Date: 20220523
  Transmission Date: 20220721
  Serious: Yes (Other)
  Sender: FDA-Public Use
  Company Number: GB-MHRA-MED-202205160951413570-TWLRF

PATIENT
  Age: 65 Year
  Sex: Female

DRUGS (1)
  1. DONEPEZIL [Suspect]
     Active Substance: DONEPEZIL
     Indication: Product used for unknown indication
     Dosage: UNK
     Dates: start: 20220104, end: 20220506

REACTIONS (3)
  - Hallucination [Unknown]
  - Nausea [Unknown]
  - Nightmare [Unknown]

NARRATIVE: CASE EVENT DATE: 20220406
